FAERS Safety Report 9271795 (Version 1)
Quarter: 2013Q2

REPORT INFORMATION
  Report Type: Report from Study
  Country: DE (occurrence: DE)
  Receive Date: 20130506
  Receipt Date: 20130506
  Transmission Date: 20140414
  Serious: Yes (Death)
  Sender: FDA-Public Use
  Company Number: DE-PFIZER INC-2013135823

PATIENT
  Age: 46 Year
  Sex: Male

DRUGS (6)
  1. PROPOFOL PFIZER [Suspect]
     Dosage: UNK
     Route: 042
  2. DIAZEPAM [Suspect]
     Dosage: UNK
     Route: 042
  3. TRAMADOL HCL [Suspect]
     Dosage: UNK
     Route: 042
  4. MORPHINE SULFATE [Suspect]
     Dosage: UNK
     Route: 042
  5. CODEINE [Suspect]
     Dosage: UNK
     Route: 042
  6. PIRITRAMIDE [Suspect]
     Dosage: UNK
     Route: 042

REACTIONS (6)
  - Completed suicide [Fatal]
  - Pulmonary oedema [None]
  - Visceral congestion [None]
  - Urinary retention [None]
  - Cardiomegaly [None]
  - Arteriosclerosis coronary artery [None]
